FAERS Safety Report 15537186 (Version 1)
Quarter: 2018Q4

REPORT INFORMATION
  Report Type: Report from Study
  Country: DE (occurrence: DE)
  Receive Date: 20181022
  Receipt Date: 20181022
  Transmission Date: 20190205
  Serious: Yes (Hospitalization)
  Sender: FDA-Public Use
  Company Number: DE-PFIZER INC-2018420284

PATIENT
  Age: 55 Year
  Sex: Male
  Weight: 100 kg

DRUGS (15)
  1. IRINOTECAN [Suspect]
     Active Substance: IRINOTECAN
     Indication: COLORECTAL CANCER METASTATIC
     Dosage: 360 MG, UNK
     Route: 065
     Dates: start: 20180122
  2. PANITUMUMAB [Suspect]
     Active Substance: PANITUMUMAB
     Dosage: 570 MG, UNK
     Route: 042
     Dates: start: 20180326
  3. PANITUMUMAB [Suspect]
     Active Substance: PANITUMUMAB
     Dosage: 580 MG, UNK
     Route: 042
     Dates: start: 20180508
  4. PANITUMUMAB [Suspect]
     Active Substance: PANITUMUMAB
     Dosage: 560 MG, UNK
     Route: 042
     Dates: start: 20180711
  5. PANITUMUMAB [Suspect]
     Active Substance: PANITUMUMAB
     Dosage: 570 MG, UNK
     Route: 042
     Dates: start: 20180725
  6. PANTOZOL [Concomitant]
     Active Substance: PANTOPRAZOLE SODIUM
     Indication: ESSENTIAL HYPERTENSION
     Dosage: 40 MG, 1X/DAY
     Route: 048
  7. PANITUMUMAB [Suspect]
     Active Substance: PANITUMUMAB
     Dosage: 580 MG, UNK
     Route: 042
     Dates: start: 20180312
  8. PANITUMUMAB [Suspect]
     Active Substance: PANITUMUMAB
     Indication: COLORECTAL CANCER METASTATIC
     Dosage: 590 MG, UNK
     Route: 042
     Dates: start: 20180122
  9. PANITUMUMAB [Suspect]
     Active Substance: PANITUMUMAB
     Dosage: 570 MG, UNK
     Route: 042
     Dates: start: 20180627
  10. FLUOROURACIL. [Suspect]
     Active Substance: FLUOROURACIL
     Indication: COLORECTAL CANCER METASTATIC
     Dosage: 4800 MG, UNK
     Route: 042
     Dates: start: 20180122
  11. RAMIPRIL BETA COMP [Concomitant]
     Indication: ESSENTIAL HYPERTENSION
     Dosage: 10 MG, 1X/DAY
     Route: 048
  12. PANITUMUMAB [Suspect]
     Active Substance: PANITUMUMAB
     Dosage: 560 MG, UNK
     Route: 042
     Dates: start: 20180226
  13. PANITUMUMAB [Suspect]
     Active Substance: PANITUMUMAB
     Dosage: 560 MG, UNK
     Route: 042
     Dates: start: 20180523
  14. CALCIUM FOLINATE [Suspect]
     Active Substance: LEUCOVORIN CALCIUM
     Indication: COLORECTAL CANCER METASTATIC
     Dosage: 800 MG, UNK
     Dates: start: 20180122
  15. METOPROLOL. [Concomitant]
     Active Substance: METOPROLOL
     Indication: ESSENTIAL HYPERTENSION
     Dosage: 95 MG, 1X/DAY
     Route: 048

REACTIONS (3)
  - Nausea [Recovered/Resolved]
  - Diarrhoea [Recovered/Resolved]
  - Vomiting [Recovered/Resolved]

NARRATIVE: CASE EVENT DATE: 20180731
